FAERS Safety Report 7258097-X (Version None)
Quarter: 2011Q1

REPORT INFORMATION
  Report Type: 
  Country: None (occurrence: None)
  Receive Date: 20110129
  Receipt Date: 20100726
  Transmission Date: 20110831
  Serious: No
  Sender: FDA-Public Use
  Company Number: US-ABBOTT-10P-163-0659782-00

PATIENT
  Age: 34 Year
  Sex: Male

DRUGS (7)
  1. PROTEIN SHAKES [Concomitant]
     Indication: PRODUCT USED FOR UNKNOWN INDICATION
  2. HUMIRA [Suspect]
     Indication: PSORIATIC ARTHROPATHY
     Dates: start: 20100401, end: 20100615
  3. CODEINE #4 [Concomitant]
     Indication: PRODUCT USED FOR UNKNOWN INDICATION
  4. OTC SALINE NASAL SPRAY [Concomitant]
     Indication: PRODUCT USED FOR UNKNOWN INDICATION
  5. ANDROGEL [Concomitant]
     Indication: PRODUCT USED FOR UNKNOWN INDICATION
  6. PROTEIN SUPPLEMENTS [Concomitant]
     Indication: PRODUCT USED FOR UNKNOWN INDICATION
  7. FIORICET [Concomitant]
     Indication: PRODUCT USED FOR UNKNOWN INDICATION

REACTIONS (7)
  - FATIGUE [None]
  - DIZZINESS [None]
  - NASAL DRYNESS [None]
  - HEADACHE [None]
  - RESTLESS LEGS SYNDROME [None]
  - FORMICATION [None]
  - NASAL CONGESTION [None]
